FAERS Safety Report 25529889 (Version 1)
Quarter: 2025Q3

REPORT INFORMATION
  Report Type: Report from Study
  Country: US (occurrence: US)
  Receive Date: 20250708
  Receipt Date: 20250708
  Transmission Date: 20251021
  Serious: No
  Sender: IPSEN BIOPHARMACEUTICALS, INC.
  Company Number: US-IPSEN Group, Research and Development-2024-10602

PATIENT
  Age: 31 Month
  Sex: Male
  Weight: 13.4 kg

DRUGS (6)
  1. BYLVAY [Suspect]
     Active Substance: ODEVIXIBAT
     Indication: Progressive familial intrahepatic cholestasis
  2. BYLVAY [Suspect]
     Active Substance: ODEVIXIBAT
     Dosage: 600 MCG (PELLETES)
     Dates: start: 20230128
  3. BYLVAY [Suspect]
     Active Substance: ODEVIXIBAT
     Dosage: 600 MCG IN THE MORNING
     Dates: start: 20240401
  4. URSODIOL [Concomitant]
     Active Substance: URSODIOL
     Indication: Progressive familial intrahepatic cholestasis
  5. VITAMIN D3 LIQ [Concomitant]
     Indication: Progressive familial intrahepatic cholestasis
  6. MULTIVITAMIN WITH FLUORIDE [Concomitant]
     Active Substance: .ALPHA.-TOCOPHEROL\.ALPHA.-TOCOPHEROL ACETATE\.ALPHA.-TOCOPHEROL ACETATE, DL-\ASCORBIC ACID\CHOLECAL
     Indication: Progressive familial intrahepatic cholestasis

REACTIONS (4)
  - Abdominal discomfort [Not Recovered/Not Resolved]
  - Diarrhoea [Recovered/Resolved]
  - Diarrhoea [Not Recovered/Not Resolved]
  - Inappropriate schedule of product administration [Unknown]

NARRATIVE: CASE EVENT DATE: 20240401
